FAERS Safety Report 8093960-1 (Version None)
Quarter: 2012Q1

REPORT INFORMATION
  Report Type: 
  Country: None (occurrence: None)
  Receive Date: 20120130
  Receipt Date: 20120124
  Transmission Date: 20120608
  Serious: Yes (Death)
  Sender: FDA-Public Use
  Company Number: US-BRACCO-007430

PATIENT

DRUGS (1)
  1. IOPAMIDOL [Suspect]
     Route: 064
     Dates: start: 20111020, end: 20111020

REACTIONS (2)
  - FOETAL EXPOSURE DURING PREGNANCY [None]
  - FAILURE TO THRIVE [None]
